FAERS Safety Report 13900032 (Version 2)
Quarter: 2017Q3

REPORT INFORMATION
  Report Type: Spontaneous
  Country: US (occurrence: US)
  Receive Date: 20170823
  Receipt Date: 20170901
  Transmission Date: 20171127
  Serious: No
  Sender: FDA-Public Use
  Company Number: GXBR2017US002124

PATIENT
  Sex: Female

DRUGS (1)
  1. DESIPRAMINE HCL TABLETS USP [Suspect]
     Active Substance: DESIPRAMINE HYDROCHLORIDE
     Indication: PRODUCT USED FOR UNKNOWN INDICATION
     Dosage: 50 MG, UNK
     Route: 048

REACTIONS (6)
  - Abdominal pain [Unknown]
  - Dysphagia [Unknown]
  - Aphasia [Unknown]
  - Salivary hypersecretion [Unknown]
  - Throat irritation [Unknown]
  - Foreign body in respiratory tract [Unknown]
